FAERS Safety Report 4584660-0 (Version None)
Quarter: 2005Q1

REPORT INFORMATION
  Report Type: 
  Country: None (occurrence: None)
  Receive Date: 20050125
  Receipt Date: 20040915
  Transmission Date: 20050727
  Serious: No
  Sender: FDA-Public Use
  Company Number: USA040978494

PATIENT
  Sex: Female

DRUGS (4)
  1. FORTEO [Suspect]
     Dates: start: 20040901
  2. Z-BEC [Concomitant]
  3. CALCIUM GLUCONATE [Concomitant]
  4. OSTEO BI-FLEX [Concomitant]

REACTIONS (2)
  - ASTHENIA [None]
  - INJECTION SITE PAIN [None]
